FAERS Safety Report 4848582-X (Version None)
Quarter: 2005Q4

REPORT INFORMATION
  Report Type: 
  Country: None (occurrence: None)
  Receive Date: 20051206
  Receipt Date: 20051129
  Transmission Date: 20060501
  Serious: Yes (Death)
  Sender: FDA-Public Use
  Company Number: TOR 2005-0034

PATIENT
  Age: 49 Year
  Sex: Female

DRUGS (1)
  1. FARESTON [Suspect]
     Indication: BREAST CANCER
     Dosage: 40 MG
     Route: 048
     Dates: start: 20051006, end: 20051103

REACTIONS (2)
  - CARDIO-RESPIRATORY ARREST [None]
  - PULMONARY EMBOLISM [None]
